FAERS Safety Report 4408265-7 (Version None)
Quarter: 2004Q3

REPORT INFORMATION
  Report Type: 
  Country: None (occurrence: None)
  Receive Date: 20040722
  Receipt Date: 20040709
  Transmission Date: 20050211
  Serious: Yes (Hospitalization)
  Sender: FDA-Public Use
  Company Number: US-JNJFOC-20040505053

PATIENT
  Age: 75 Year
  Sex: Female

DRUGS (23)
  1. INFLIXIMAB (INFLIXIMAB, RECOMBINANT) LYOPHILIZED POWDER [Suspect]
     Indication: RHEUMATOID ARTHRITIS
     Dosage: 3 MG/KG, 1 IN 8 WEEK, INTRAVENOUS
     Route: 042
     Dates: start: 20010529
  2. INFLIXIMAB (INFLIXIMAB, RECOMBINANT) LYOPHILIZED POWDER [Suspect]
     Indication: RHEUMATOID ARTHRITIS
     Dosage: 3 MG/KG, 1 IN 8 WEEK, INTRAVENOUS
     Route: 042
     Dates: start: 20040316
  3. ACTONEL (TALBETS) RISEDRONATE SODIUM [Concomitant]
  4. ULTRACEPT (TABLETS) TRAMADOL/APAP [Concomitant]
  5. BEXTAR (BUCINDOLOL HYDROCHLORIDE) TABLETS [Concomitant]
  6. NEURONTIN [Concomitant]
  7. METHOTREXATE [Concomitant]
  8. FOLIC ACID [Concomitant]
  9. CALCIUM CARBONATE/VITAMIN D (CALCIUIM CARBONATE) [Concomitant]
  10. PLAQUENIL [Concomitant]
  11. ATENOLOL [Concomitant]
  12. ASPIRIN [Concomitant]
  13. VITAMIN E [Concomitant]
  14. MULTIVITAMIN [Concomitant]
  15. DIFLUCAN [Concomitant]
  16. TYLENOL [Concomitant]
  17. MILK OF MAGNESIA (MAGNESIUM HYDROXIDE) [Concomitant]
  18. DESYREL [Concomitant]
  19. FORTEO [Concomitant]
  20. PROTONIX [Concomitant]
  21. ALDOMET [Concomitant]
  22. COMBIVENT [Concomitant]
  23. PHENERGAN [Concomitant]

REACTIONS (14)
  - BLOOD PRESSURE INCREASED [None]
  - CONSTIPATION [None]
  - HAEMATOCRIT DECREASED [None]
  - HAEMOGLOBIN DECREASED [None]
  - HYPOKALAEMIA [None]
  - HYPONATRAEMIA [None]
  - LUMBAR VERTEBRAL FRACTURE [None]
  - OESOPHAGEAL CANDIDIASIS [None]
  - OSTEOPOROSIS [None]
  - PANCREATITIS [None]
  - SPINAL COLUMN STENOSIS [None]
  - SPINAL COMPRESSION FRACTURE [None]
  - SPINAL OSTEOARTHRITIS [None]
  - URINARY TRACT INFECTION [None]
